FAERS Safety Report 4772978-8 (Version None)
Quarter: 2005Q3

REPORT INFORMATION
  Report Type: 
  Country: None (occurrence: None)
  Receive Date: 20050919
  Receipt Date: 20050912
  Transmission Date: 20060218
  Serious: Yes (Life-Threatening)
  Sender: FDA-Public Use
  Company Number: PHRM2005FR02427

PATIENT
  Age: 68 Year
  Sex: Male

DRUGS (2)
  1. GLEEVEC [Suspect]
     Indication: CHRONIC MYELOID LEUKAEMIA
     Dosage: 400 MG/DAY
     Route: 048
     Dates: start: 20030212, end: 20041201
  2. GLEEVEC [Suspect]
     Dosage: 300 MG/DAY
     Route: 048
     Dates: start: 20050101

REACTIONS (5)
  - ABDOMINAL WALL DISORDER [None]
  - ECZEMA [None]
  - RASH MACULAR [None]
  - SKIN LESION [None]
  - SQUAMOUS CELL CARCINOMA [None]
